FAERS Safety Report 12836729 (Version 1)
Quarter: 2016Q4

REPORT INFORMATION
  Report Type: Spontaneous
  Country: NO (occurrence: NO)
  Receive Date: 20161011
  Receipt Date: 20161011
  Transmission Date: 20170207
  Serious: Yes (Other)
  Sender: FDA-Public Use
  Company Number: NO-PFIZER INC-2016464185

PATIENT
  Age: 8 Decade
  Sex: Male

DRUGS (3)
  1. ROSUVASTATIN. [Suspect]
     Active Substance: ROSUVASTATIN
     Route: 065
  2. ATORVASTATIN CALCIUM. [Suspect]
     Active Substance: ATORVASTATIN CALCIUM
     Route: 065
  3. SIMVASTATIN. [Suspect]
     Active Substance: SIMVASTATIN
     Route: 065

REACTIONS (5)
  - Muscle necrosis [Recovering/Resolving]
  - Myopathy [Recovering/Resolving]
  - Blood creatine phosphokinase increased [Recovering/Resolving]
  - Asthenia [Recovering/Resolving]
  - Myalgia [Recovering/Resolving]
